FAERS Safety Report 23686023 (Version 1)
Quarter: 2024Q1

REPORT INFORMATION
  Report Type: Spontaneous
  Country: US (occurrence: US)
  Receive Date: 20240329
  Receipt Date: 20240329
  Transmission Date: 20240409
  Serious: Yes (Other)
  Sender: FDA-Public Use
  Company Number: US-SUN PHARMACEUTICAL INDUSTRIES LTD-2024R1-438434

PATIENT
  Age: 77 Year
  Sex: Female
  Weight: 57.5 kg

DRUGS (10)
  1. GABAPENTIN [Suspect]
     Active Substance: GABAPENTIN
     Indication: Parkinson^s disease
     Dosage: 300 MILLIGRAM
     Route: 065
  2. TYLENOL [Suspect]
     Active Substance: ACETAMINOPHEN
     Indication: Parkinson^s disease
     Dosage: 1000 MILLIGRAM
     Route: 065
  3. MELATONIN [Suspect]
     Active Substance: MELATONIN
     Indication: Parkinson^s disease
     Dosage: UNK
     Route: 065
  4. AMBIEN [Suspect]
     Active Substance: ZOLPIDEM TARTRATE
     Indication: Parkinson^s disease
     Dosage: 10 MILLIGRAM
     Route: 065
  5. REQUIP [Suspect]
     Active Substance: ROPINIROLE HYDROCHLORIDE
     Indication: Parkinson^s disease
     Dosage: 8 MILLIGRAM, DAILY
     Route: 065
  6. NEUPRO [Suspect]
     Active Substance: ROTIGOTINE
     Indication: Parkinson^s disease
     Dosage: 4 MILLIGRAM, DAILY
     Route: 062
  7. COMTAN [Suspect]
     Active Substance: ENTACAPONE
     Indication: Parkinson^s disease
     Dosage: 200 MILLIGRAM, DAILY
     Route: 065
  8. AZILECT [Suspect]
     Active Substance: RASAGILINE MESYLATE
     Indication: Parkinson^s disease
     Dosage: 1 MILLIGRAM, DAILY
     Route: 065
  9. RYTARY [Suspect]
     Active Substance: CARBIDOPA\LEVODOPA
     Indication: Parkinson^s disease
     Dosage: 2 DOSAGE FORM, DAILY
     Route: 065
  10. SINEMET [Suspect]
     Active Substance: CARBIDOPA\LEVODOPA
     Indication: Parkinson^s disease
     Dosage: (25/100 MG) 5 X DAILY
     Route: 065

REACTIONS (5)
  - Vomiting [Unknown]
  - Therapeutic response decreased [Unknown]
  - Drug resistance [Unknown]
  - Dyskinesia [Unknown]
  - Nausea [Unknown]
